FAERS Safety Report 13679576 (Version 1)
Quarter: 2017Q2

REPORT INFORMATION
  Report Type: Spontaneous
  Country: CA (occurrence: CA)
  Receive Date: 20170622
  Receipt Date: 20170622
  Transmission Date: 20170830
  Serious: Yes (Other)
  Sender: FDA-Public Use
  Company Number: CA-GE HEALTHCARE LIFE SCIENCES-2017CSU001769

PATIENT

DRUGS (1)
  1. OMNIPAQUE [Suspect]
     Active Substance: IOHEXOL
     Indication: DISORDER OF ORBIT
     Dosage: 60 ML, SINGLE
     Route: 042
     Dates: start: 20161017, end: 20161017

REACTIONS (1)
  - Sensation of foreign body [Recovered/Resolved]

NARRATIVE: CASE EVENT DATE: 20161017
